FAERS Safety Report 25817974 (Version 1)
Quarter: 2025Q3

REPORT INFORMATION
  Report Type: Spontaneous
  Country: GB (occurrence: GB)
  Receive Date: 20250918
  Receipt Date: 20250918
  Transmission Date: 20251020
  Serious: Yes (Death, Hospitalization, Other)
  Sender: MYLAN
  Company Number: GB-MYLANLABS-2025M1048429

PATIENT
  Sex: Male

DRUGS (2)
  1. CLOZARIL [Suspect]
     Active Substance: CLOZAPINE
     Indication: Schizophrenia
     Dosage: BID, (100MG MORNING AND 300MG NIGHT)
     Dates: start: 20080707
  2. CLOZARIL [Suspect]
     Active Substance: CLOZAPINE
     Dates: start: 20140404, end: 20250529

REACTIONS (2)
  - Death [Fatal]
  - Pneumonia [Recovered/Resolved with Sequelae]
